FAERS Safety Report 4710821-3 (Version None)
Quarter: 2005Q3

REPORT INFORMATION
  Report Type: 
  Country: None (occurrence: None)
  Receive Date: 20050706
  Receipt Date: 20050706
  Transmission Date: 20060218
  Serious: Yes (Other)
  Sender: FDA-Public Use
  Company Number: None

PATIENT
  Age: 72 Year
  Sex: Male
  Weight: 108.8633 kg

DRUGS (1)
  1. VALIUM [Suspect]
     Indication: ADHESION
     Dosage: SEE IMAGE
     Route: 042
     Dates: start: 20050122, end: 20050123

REACTIONS (8)
  - ABDOMINAL PAIN [None]
  - APNOEA [None]
  - CONFUSIONAL STATE [None]
  - DEPRESSED LEVEL OF CONSCIOUSNESS [None]
  - LETHARGY [None]
  - NAUSEA [None]
  - SNORING [None]
  - VOMITING [None]
